FAERS Safety Report 9689819 (Version 4)
Quarter: 2014Q2

REPORT INFORMATION
  Report Type: Report from Study
  Country: JP (occurrence: JP)
  Receive Date: 20131115
  Receipt Date: 20140402
  Transmission Date: 20141212
  Serious: Yes (Hospitalization)
  Sender: FDA-Public Use
  Company Number: JP-BRISTOL-MYERS SQUIBB COMPANY-19789254

PATIENT
  Age: 67 Year
  Sex: Male

DRUGS (15)
  1. BLINDED: IPILIMUMAB [Suspect]
     Indication: NON-SMALL CELL LUNG CANCER
     Dosage: 11SEP13-23OCT13
     Route: 042
     Dates: start: 20130911, end: 20131023
  2. CARBOPLATIN [Suspect]
     Indication: NON-SMALL CELL LUNG CANCER
     Dosage: 31JUL13-23OCT13
     Route: 042
     Dates: start: 20130731, end: 20131023
  3. PACLITAXEL [Suspect]
     Indication: NON-SMALL CELL LUNG CANCER
     Dosage: 31JUL13-23OCT13
     Route: 042
     Dates: start: 20130731, end: 20131023
  4. BLINDED: PLACEBO [Suspect]
     Indication: NON-SMALL CELL LUNG CANCER
     Route: 042
     Dates: start: 20130911, end: 20131023
  5. LOXOPROFEN SODIUM [Concomitant]
     Dates: start: 20130729
  6. BROTIZOLAM [Concomitant]
     Dates: start: 20130729
  7. LANSOPRAZOLE [Concomitant]
     Dosage: 2002-
     Dates: start: 20130729
  8. GLIMEPIRIDE [Concomitant]
     Dosage: 1990-?2010-
     Dates: start: 1990
  9. DICYCLOMINE HCL [Concomitant]
     Dates: start: 20130725
  10. MAGNESIUM OXIDE [Concomitant]
     Dates: start: 20130802, end: 20131107
  11. METFORMIN HCL [Concomitant]
     Dosage: 2010-
     Dates: start: 1990
  12. ZOLPIDEM TARTRATE [Concomitant]
     Dates: start: 20131002
  13. OLOPATADINE HCL [Concomitant]
     Dates: start: 20131003
  14. KOLANTYL [Concomitant]
     Dates: start: 2002
  15. SENNOSIDE [Concomitant]
     Dates: start: 20130801

REACTIONS (1)
  - Interstitial lung disease [Recovered/Resolved]
